FAERS Safety Report 5794054-8 (Version None)
Quarter: 2008Q2

REPORT INFORMATION
  Report Type: 
  Country: None (occurrence: None)
  Receive Date: 20080627
  Receipt Date: 20080616
  Transmission Date: 20081010
  Serious: Yes (Other)
  Sender: FDA-Public Use
  Company Number: US-PFIZER INC-2008042502

PATIENT
  Sex: Male
  Weight: 62 kg

DRUGS (2)
  1. CHANTIX [Suspect]
     Indication: SMOKING CESSATION THERAPY
     Route: 048
  2. VITAMIN CAP [Concomitant]

REACTIONS (3)
  - DEPRESSION [None]
  - HALLUCINATION [None]
  - THINKING ABNORMAL [None]
